FAERS Safety Report 23438615 (Version 2)
Quarter: 2024Q2

REPORT INFORMATION
  Report Type: Spontaneous
  Country: US (occurrence: US)
  Receive Date: 20240124
  Receipt Date: 20240521
  Transmission Date: 20240715
  Serious: No
  Sender: FDA-Public Use
  Company Number: US-SA-SAC20240117000880

PATIENT
  Age: 56 Year
  Sex: Female

DRUGS (22)
  1. DUPIXENT [Suspect]
     Active Substance: DUPILUMAB
     Indication: Dermatitis atopic
     Dosage: 300 MG, QOW
     Route: 058
     Dates: start: 20230601
  2. ATORVASTATIN [Concomitant]
     Active Substance: ATORVASTATIN
     Dosage: UNK
  3. ATORVASTATIN [Concomitant]
     Active Substance: ATORVASTATIN
     Dosage: AS NEEDED
  4. CLONAZEPAM [Concomitant]
     Active Substance: CLONAZEPAM
     Dosage: UNK
  5. CLONAZEPAM [Concomitant]
     Active Substance: CLONAZEPAM
  6. GABAPENTIN [Concomitant]
     Active Substance: GABAPENTIN
     Dosage: UNK
  7. GABAPENTIN [Concomitant]
     Active Substance: GABAPENTIN
  8. METFORMIN HYDROCHLORIDE [Concomitant]
     Active Substance: METFORMIN HYDROCHLORIDE
     Dosage: UNK
  9. NOVOLOG [Concomitant]
     Active Substance: INSULIN ASPART
     Dosage: UNK
  10. OMEPRAZOLE [Concomitant]
     Active Substance: DONEPEZIL HYDROCHLORIDE\OMEPRAZOLE\OMEPRAZOLE MAGNESIUM
     Dosage: UNK
  11. OMEPRAZOLE [Concomitant]
     Active Substance: DONEPEZIL HYDROCHLORIDE\OMEPRAZOLE\OMEPRAZOLE MAGNESIUM
  12. TIZANIDINE HYDROCHLORIDE [Concomitant]
     Active Substance: TIZANIDINE HYDROCHLORIDE
     Dosage: UNK
  13. TIZANIDINE HYDROCHLORIDE [Concomitant]
     Active Substance: TIZANIDINE HYDROCHLORIDE
  14. TRAZODONE HCL [Concomitant]
     Active Substance: TRAZODONE HYDROCHLORIDE
     Dosage: UNK
  15. TRAZODONE HCL [Concomitant]
     Active Substance: TRAZODONE HYDROCHLORIDE
  16. TRESIBA [Concomitant]
     Active Substance: INSULIN DEGLUDEC
     Dosage: UNK
  17. VENLAFAXINE [Concomitant]
     Active Substance: VENLAFAXINE HYDROCHLORIDE
     Dosage: UNK
  18. VENLAFAXINE [Concomitant]
     Active Substance: VENLAFAXINE HYDROCHLORIDE
  19. LEVOTHYROXINE [Concomitant]
     Active Substance: LEVOTHYROXINE\LEVOTHYROXINE SODIUM
     Dosage: UNK
  20. MECLIZINE HYDROCHLORIDE [Concomitant]
     Active Substance: MECLIZINE HYDROCHLORIDE
  21. NOVOLOG [Concomitant]
     Active Substance: INSULIN ASPART
  22. TRESIBA [Concomitant]
     Active Substance: INSULIN DEGLUDEC

REACTIONS (18)
  - Foreign body sensation in eyes [Not Recovered/Not Resolved]
  - Skin fissures [Unknown]
  - Dry skin [Recovered/Resolved]
  - Asthenia [Unknown]
  - Fatigue [Unknown]
  - Initial insomnia [Unknown]
  - Depressed mood [Unknown]
  - Abdominal discomfort [Unknown]
  - Decreased appetite [Unknown]
  - Diarrhoea [Unknown]
  - Vertigo [Unknown]
  - Skin burning sensation [Unknown]
  - Pruritus [Unknown]
  - Skin exfoliation [Recovered/Resolved]
  - Therapeutic response shortened [Unknown]
  - Rash erythematous [Not Recovered/Not Resolved]
  - Dry eye [Not Recovered/Not Resolved]
  - Injection site pain [Recovered/Resolved]
